FAERS Safety Report 6150118-0 (Version None)
Quarter: 2009Q2

REPORT INFORMATION
  Report Type: 
  Country: None (occurrence: None)
  Receive Date: 20090409
  Receipt Date: 20090402
  Transmission Date: 20091009
  Serious: Yes (Hospitalization, Other)
  Sender: FDA-Public Use
  Company Number: CA-AMGEN-STX341134

PATIENT
  Sex: Male
  Weight: 89 kg

DRUGS (3)
  1. VECTIBIX [Suspect]
     Indication: COLORECTAL CANCER
     Route: 042
     Dates: start: 20090204
  2. VECTIBIX [Suspect]
     Route: 042
     Dates: start: 20090304, end: 20090304
  3. MINOCYCLINE HCL [Suspect]
     Indication: INFECTION PROPHYLAXIS
     Dates: start: 20090207

REACTIONS (6)
  - NEUTROPENIA [None]
  - NEUTROPHIL COUNT DECREASED [None]
  - PYREXIA [None]
  - RASH [None]
  - SKIN TOXICITY [None]
  - VIRAL INFECTION [None]
